FAERS Safety Report 24793994 (Version 1)
Quarter: 2024Q4

REPORT INFORMATION
  Report Type: Spontaneous
  Country: US (occurrence: None)
  Receive Date: 20241230
  Receipt Date: 20241230
  Transmission Date: 20250114
  Serious: Yes (Disabling, Other)
  Sender: Public
  Company Number: None

PATIENT
  Age: 30 Year
  Sex: Female
  Weight: 63 kg

DRUGS (8)
  1. GABAPENTIN [Suspect]
     Active Substance: GABAPENTIN
     Indication: Neuralgia
     Dates: start: 20210504
  2. Lexapro 15mg, [Concomitant]
  3. PROPRANOLOL [Suspect]
     Active Substance: PROPRANOLOL HYDROCHLORIDE
  4. RIZATRIPTAN [Suspect]
     Active Substance: RIZATRIPTAN
  5. LIOTHYRONINE [Suspect]
     Active Substance: LIOTHYRONINE
  6. LEVOTHYROXINE [Suspect]
     Active Substance: LEVOTHYROXINE
  7. NALTREXONE [Suspect]
     Active Substance: NALTREXONE
  8. PROGESTERONE [Suspect]
     Active Substance: PROGESTERONE

REACTIONS (4)
  - Chronic fatigue syndrome [None]
  - Euphoric mood [None]
  - Impaired quality of life [None]
  - Loss of personal independence in daily activities [None]

NARRATIVE: CASE EVENT DATE: 20230705
